FAERS Safety Report 9921625 (Version 1)
Quarter: 2014Q1

REPORT INFORMATION
  Report Type: Spontaneous
  Country: US (occurrence: US)
  Receive Date: 20140225
  Receipt Date: 20140225
  Transmission Date: 20141002
  Serious: Yes (Hospitalization, Other)
  Sender: FDA-Public Use
  Company Number: US-PFIZER INC-2014052736

PATIENT
  Age: 26 Year
  Sex: Female
  Weight: 68.03 kg

DRUGS (9)
  1. EFFEXOR XR [Suspect]
     Indication: DEPRESSION
     Dosage: UNK
  2. EFFEXOR XR [Suspect]
     Indication: ANXIETY
  3. EFFEXOR XR [Suspect]
     Indication: PANIC DISORDER
  4. CLONAZEPAM [Suspect]
     Indication: DEPRESSION
     Dosage: UNK
  5. CLONAZEPAM [Suspect]
     Indication: ANXIETY
  6. CLONAZEPAM [Suspect]
     Indication: PANIC DISORDER
  7. WELLBUTRIN [Suspect]
     Indication: DEPRESSION
     Dosage: UNK
  8. WELLBUTRIN [Suspect]
     Indication: ANXIETY
  9. WELLBUTRIN [Suspect]
     Indication: PANIC DISORDER

REACTIONS (1)
  - Convulsion [Unknown]
